FAERS Safety Report 23813383 (Version 1)
Quarter: 2024Q2

REPORT INFORMATION
  Report Type: Other
  Country: US (occurrence: None)
  Receive Date: 20240503
  Receipt Date: 20240503
  Transmission Date: 20240715
  Serious: Yes (Other)
  Sender: FDA-Public Use
  Company Number: US-ROCHE-3545656

PATIENT
  Age: 66 Year
  Sex: Female

DRUGS (1)
  1. OCREVUS [Suspect]
     Active Substance: OCRELIZUMAB
     Indication: Relapsing multiple sclerosis
     Dosage: UNKNOWN; THEN FOR EVERY 6 MONTHS, DOT: 18/AUG/2022, 09/FEB/2022
     Route: 065
     Dates: start: 20220126

REACTIONS (1)
  - Renal failure [Unknown]
